FAERS Safety Report 6380675-0 (Version None)
Quarter: 2009Q3

REPORT INFORMATION
  Report Type: 
  Country: None (occurrence: None)
  Receive Date: 20090929
  Receipt Date: 20090608
  Transmission Date: 20100115
  Serious: No
  Sender: FDA-Public Use
  Company Number: US-BAYER-200913958BCC

PATIENT
  Age: 2 Year
  Sex: Male

DRUGS (1)
  1. ALEVE (CAPLET) [Suspect]
     Indication: ACCIDENTAL DRUG INTAKE BY CHILD
     Dosage: TOTAL DAILY DOSE: 220 MG  UNIT DOSE: 220 MG
     Route: 048
     Dates: start: 20090606, end: 20090606

REACTIONS (1)
  - NO ADVERSE EVENT [None]
